FAERS Safety Report 16323937 (Version 1)
Quarter: 2019Q2

REPORT INFORMATION
  Report Type: Spontaneous
  Country: JP (occurrence: JP)
  Receive Date: 20190517
  Receipt Date: 20190517
  Transmission Date: 20190711
  Serious: Yes (Other)
  Sender: FDA-Public Use
  Company Number: JP-TEVA-2019-JP-1053191

PATIENT
  Sex: Female

DRUGS (1)
  1. RISEDRONATE SODIUM - BP [Suspect]
     Active Substance: RISEDRONATE SODIUM
     Indication: PRODUCT USED FOR UNKNOWN INDICATION
     Route: 048
     Dates: end: 20180522

REACTIONS (5)
  - Osteonecrosis of jaw [Unknown]
  - Gingival swelling [Unknown]
  - Buccal mucosal roughening [Unknown]
  - Swelling face [Unknown]
  - Poor dental condition [Unknown]

NARRATIVE: CASE EVENT DATE: 2018
